FAERS Safety Report 26082504 (Version 1)
Quarter: 2025Q4

REPORT INFORMATION
  Report Type: Spontaneous
  Country: US (occurrence: None)
  Receive Date: 20251121
  Receipt Date: 20251121
  Transmission Date: 20260118
  Serious: Yes (Death)
  Sender: FDA-CTU
  Company Number: None

PATIENT
  Sex: Male

DRUGS (5)
  1. LENALIDOMIDE [Suspect]
     Active Substance: LENALIDOMIDE
     Indication: Follicular lymphoma
     Dosage: FREQUENCY : DAILY;?
     Route: 048
     Dates: start: 20250905
  2. ELIQUIS [Concomitant]
     Active Substance: APIXABAN
  3. ONDANSETRON [Concomitant]
     Active Substance: ONDANSETRON
  4. ZOSYN SOL 4-0.5GM [Concomitant]
  5. ZYPREXA TAB 20MG [Concomitant]

REACTIONS (1)
  - Death [None]
